FAERS Safety Report 6500530-2 (Version None)
Quarter: 2009Q4

REPORT INFORMATION
  Report Type: 
  Country: None (occurrence: None)
  Receive Date: 20091216
  Receipt Date: 20091210
  Transmission Date: 20100525
  Serious: Yes (Other)
  Sender: FDA-Public Use
  Company Number: DE-BRISTOL-MYERS SQUIBB COMPANY-14891113

PATIENT
  Age: 38 Year
  Sex: Female

DRUGS (7)
  1. ABILIFY [Suspect]
     Dosage: 5 TABLETS
     Route: 048
  2. METFORMIN HCL [Suspect]
     Dosage: 1DF: 5 TABLETS
  3. CIPRALEX [Suspect]
     Dosage: 5 TABLETS OF CIPRALEX 10MG
  4. DIPIPERON [Suspect]
     Dosage: 5 TABLETS OF 20MG
  5. LEVOTHYROXINE SODIUM [Suspect]
     Dosage: 1DF: 5TABLETS
  6. RAMIPRIL [Suspect]
     Dosage: 5 TABLETS OF RAMIPRIL 5MG
  7. TAVOR [Suspect]
     Dosage: 15 TABLETS OF TAVOR 2MG

REACTIONS (4)
  - HYPOTENSION [None]
  - INTENTIONAL OVERDOSE [None]
  - SOMNOLENCE [None]
  - SUICIDE ATTEMPT [None]
